APPROVED DRUG PRODUCT: CELECOXIB
Active Ingredient: CELECOXIB
Strength: 200MG
Dosage Form/Route: CAPSULE;ORAL
Application: A078857 | Product #003
Applicant: PHARMOBEDIENT CONSULTING LLC
Approved: Feb 11, 2015 | RLD: No | RS: No | Type: DISCN